FAERS Safety Report 4295784-X (Version None)
Quarter: 2004Q1

REPORT INFORMATION
  Report Type: 
  Country: None (occurrence: None)
  Receive Date: 20040216
  Receipt Date: 20031103
  Transmission Date: 20041129
  Serious: No
  Sender: FDA-Public Use
  Company Number: US-GLAXOSMITHKLINE-A0432612A

PATIENT
  Age: 83 Year
  Sex: Female

DRUGS (4)
  1. LAMICTAL [Suspect]
     Indication: DEPRESSION
     Dosage: 75MG TWICE PER DAY
     Route: 048
     Dates: start: 20021001
  2. LIPITOR [Concomitant]
  3. FOSAMAX [Concomitant]
  4. TEMAZEPAM [Concomitant]

REACTIONS (2)
  - CLUMSINESS [None]
  - EUPHORIC MOOD [None]
